FAERS Safety Report 23357549 (Version 1)
Quarter: 2023Q4

REPORT INFORMATION
  Report Type: Spontaneous
  Country: US (occurrence: None)
  Receive Date: 20231231
  Receipt Date: 20231231
  Transmission Date: 20240110
  Serious: Yes (Life-Threatening, Hospitalization, Disabling, Other)
  Sender: FDA-Public Use
  Company Number: None

PATIENT
  Age: 37 Year
  Sex: Female
  Weight: 49.05 kg

DRUGS (9)
  1. SULFAMETHOXAZOLE\TRIMETHOPRIM [Suspect]
     Active Substance: SULFAMETHOXAZOLE\TRIMETHOPRIM
     Indication: Urinary tract infection
     Dosage: OTHER QUANTITY : 1 TABLET(S);?FREQUENCY : TWICE A DAY;?
     Route: 048
     Dates: start: 20231009, end: 20231019
  2. FERROUS SULFATE [Suspect]
     Active Substance: FERROUS SULFATE
     Indication: Urinary tract infection
     Dosage: OTHER STRENGTH : FE;?OTHER QUANTITY : 1 TABLET(S);?FREQUENCY : DAILY;?
     Route: 048
     Dates: start: 20231009, end: 20231019
  3. ONDANSETRON [Suspect]
     Active Substance: ONDANSETRON
  4. NORETHINDRONE [Suspect]
     Active Substance: NORETHINDRONE
  5. Estarylla prescribed by OBGYN [Concomitant]
  6. Olly Women^s vitamin^s and Olly^s Prenatal Vitamins [Concomitant]
  7. VITAMIN E [Concomitant]
     Active Substance: .ALPHA.-TOCOPHEROL
  8. Goldenseal Echinacea [Concomitant]
  9. MAGNESIUM [Concomitant]
     Active Substance: MAGNESIUM

REACTIONS (5)
  - Drug hypersensitivity [None]
  - Malaise [None]
  - Eye irritation [None]
  - Vision blurred [None]
  - Anaphylactic shock [None]

NARRATIVE: CASE EVENT DATE: 20231009
